FAERS Safety Report 18135458 (Version 1)
Quarter: 2020Q3

REPORT INFORMATION
  Report Type: Spontaneous
  Country: US (occurrence: US)
  Receive Date: 20200811
  Receipt Date: 20200811
  Transmission Date: 20201103
  Serious: Yes (Hospitalization)
  Sender: FDA-Public Use
  Company Number: None

PATIENT
  Age: 23 Year
  Sex: Female

DRUGS (1)
  1. KYMRIAH [Suspect]
     Active Substance: TISAGENLECLEUCEL
     Indication: FALL
     Dates: start: 20191112, end: 20191112

REACTIONS (4)
  - Immune effector cell-associated neurotoxicity syndrome [None]
  - Encephalopathy [None]
  - Generalised tonic-clonic seizure [None]
  - Subarachnoid haemorrhage [None]

NARRATIVE: CASE EVENT DATE: 20191125
